FAERS Safety Report 5141958-5 (Version None)
Quarter: 2006Q4

REPORT INFORMATION
  Report Type: 
  Country: None (occurrence: None)
  Receive Date: 20061102
  Receipt Date: 20061017
  Transmission Date: 20070319
  Serious: Yes (Other)
  Sender: FDA-Public Use
  Company Number: PHEH2006US13150

PATIENT
  Age: 3 Year
  Sex: Male

DRUGS (1)
  1. ELIDEL [Suspect]
     Indication: RASH
     Dosage: UNK, PRN
     Route: 061

REACTIONS (1)
  - BRAIN NEOPLASM [None]
